FAERS Safety Report 9461823 (Version 1)
Quarter: 2013Q3

REPORT INFORMATION
  Report Type: Spontaneous
  Country: US (occurrence: None)
  Receive Date: 20130815
  Receipt Date: 20130815
  Transmission Date: 20140515
  Serious: Yes (Other)
  Sender: FDA-Public Use
  Company Number: None

PATIENT
  Age: 65 Year
  Sex: Female
  Weight: 68.04 kg

DRUGS (1)
  1. BENICAR HCT [Suspect]
     Dosage: ONE  ONCE DAILY  TAKEN BY MOUTH
     Route: 048

REACTIONS (3)
  - Weight decreased [None]
  - Malabsorption [None]
  - Diarrhoea [None]
